FAERS Safety Report 15264474 (Version 1)
Quarter: 2018Q3

REPORT INFORMATION
  Report Type: Spontaneous
  Country: GB (occurrence: GB)
  Receive Date: 20180810
  Receipt Date: 20180810
  Transmission Date: 20181010
  Serious: Yes (Other)
  Sender: FDA-Public Use
  Company Number: GB-TEVA-2007B-00133

PATIENT
  Age: 54 Year
  Sex: Female
  Weight: 60.3 kg

DRUGS (2)
  1. LISINOPRIL (UNKNOWN) [Suspect]
     Active Substance: LISINOPRIL
     Indication: HYPERTENSION
     Route: 048
     Dates: start: 20070201, end: 20070202
  2. XENICAL [Suspect]
     Active Substance: ORLISTAT
     Indication: OBESITY
     Route: 048
     Dates: start: 20070114, end: 20070202

REACTIONS (4)
  - Headache [Unknown]
  - Abdominal pain upper [Unknown]
  - Anaphylactic shock [Unknown]
  - Swelling face [Recovered/Resolved]

NARRATIVE: CASE EVENT DATE: 20070202
